FAERS Safety Report 8168731-8 (Version None)
Quarter: 2012Q1

REPORT INFORMATION
  Report Type: 
  Country: None (occurrence: None)
  Receive Date: 20120103
  Receipt Date: 20111114
  Transmission Date: 20120608
  Serious: No
  Sender: FDA-Public Use
  Company Number: AE-2011-003463

PATIENT
  Age: 50 Year
  Sex: Male
  Weight: 79.3795 kg

DRUGS (6)
  1. RIBAPAC (RIBAVIRIN) [Concomitant]
  2. PROMETHAZINE [Concomitant]
  3. INCIVEK [Suspect]
     Dosage: 2250 MG (750 MG,3 IN 1 D),ORAL
     Route: 048
     Dates: start: 20111104
  4. PEGASYS [Concomitant]
  5. PEPTO-BISMOL (BISMUTH SUBSALICYLATE) [Concomitant]
  6. PREPARATION H (PREPARATION H /ISR/) [Concomitant]

REACTIONS (3)
  - VISION BLURRED [None]
  - HAEMORRHOIDS [None]
  - DIARRHOEA [None]
